FAERS Safety Report 9344224 (Version 1)
Quarter: 2013Q2

REPORT INFORMATION
  Report Type: Spontaneous
  Country: GB (occurrence: GB)
  Receive Date: 20130612
  Receipt Date: 20130612
  Transmission Date: 20140414
  Serious: Yes (Other)
  Sender: FDA-Public Use
  Company Number: GB-JNJFOC-20130518424

PATIENT
  Age: 65 Year
  Sex: Female
  Weight: 103 kg

DRUGS (4)
  1. XARELTO [Suspect]
     Indication: ATRIAL FIBRILLATION
     Route: 048
     Dates: start: 20130509, end: 20130516
  2. XARELTO [Suspect]
     Indication: CEREBROVASCULAR ACCIDENT
     Route: 048
     Dates: start: 20130509, end: 20130516
  3. WARFARIN [Concomitant]
     Route: 065
  4. PROTON PUMP INHIBITORS [Concomitant]
     Route: 065

REACTIONS (4)
  - Gingival swelling [Recovered/Resolved]
  - Conjunctivitis infective [Recovered/Resolved]
  - Insomnia [Recovered/Resolved]
  - Nausea [Recovered/Resolved]
